FAERS Safety Report 6755451-7 (Version None)
Quarter: 2010Q2

REPORT INFORMATION
  Report Type: 
  Country: None (occurrence: None)
  Receive Date: 20100604
  Receipt Date: 20100526
  Transmission Date: 20101027
  Serious: Yes (Other)
  Sender: FDA-Public Use
  Company Number: US-JNJFOC-20100510527

PATIENT
  Sex: Male
  Weight: 86.18 kg

DRUGS (3)
  1. REMICADE [Suspect]
     Indication: COLITIS ULCERATIVE
     Dosage: ON INFLIXIMAB FOR ABOUT 3 YEARS
     Route: 042
  2. ASACOL [Concomitant]
     Indication: COLITIS ULCERATIVE
  3. ANDROGEL [Concomitant]

REACTIONS (1)
  - MALIGNANT MELANOMA [None]
